FAERS Safety Report 14624611 (Version 1)
Quarter: 2018Q1

REPORT INFORMATION
  Report Type: Report from Study
  Country: IT (occurrence: IT)
  Receive Date: 20180312
  Receipt Date: 20180312
  Transmission Date: 20180509
  Serious: Yes (Hospitalization, Other)
  Sender: FDA-Public Use
  Company Number: IT-ACCORD-064368

PATIENT
  Age: 74 Year
  Sex: Female

DRUGS (8)
  1. LAMICTAL [Concomitant]
     Active Substance: LAMOTRIGINE
     Dosage: STRENGTH 50 MG
     Route: 048
  2. PREGABALIN. [Concomitant]
     Active Substance: PREGABALIN
     Route: 048
  3. LORAZEPAM. [Concomitant]
     Active Substance: LORAZEPAM
     Route: 048
  4. SERTRALINE [Suspect]
     Active Substance: SERTRALINE HYDROCHLORIDE
     Indication: DEPRESSION
     Route: 048
  5. LOBIDUR [Concomitant]
     Dosage: STRENGTH 5 MG/12.5 MG
     Route: 048
  6. FULCRO [Concomitant]
     Active Substance: FENOFIBRATE
     Dosage: STRENGTH 200 MG
     Route: 048
  7. DENIBAN [Concomitant]
     Active Substance: AMISULPRIDE
     Dosage: STRENGTH 50 MG
     Route: 048
  8. ASCRIPTIN [Interacting]
     Active Substance: ASPIRIN
     Indication: PLATELET AGGREGATION INHIBITION
     Dosage: 300 MG DAILY
     Route: 048
     Dates: start: 20110101, end: 20180118

REACTIONS (3)
  - Subdural haematoma [Recovering/Resolving]
  - Drug interaction [Unknown]
  - Subarachnoid haemorrhage [Recovering/Resolving]

NARRATIVE: CASE EVENT DATE: 20180118
